FAERS Safety Report 10024979 (Version 7)
Quarter: 2015Q2

REPORT INFORMATION
  Report Type: Spontaneous
  Country: US (occurrence: US)
  Receive Date: 20140320
  Receipt Date: 20150629
  Transmission Date: 20150821
  Serious: Yes (Hospitalization, Other)
  Sender: FDA-Public Use
  Company Number: US-009507513-1403USA007815

PATIENT
  Sex: Female
  Weight: 72.56 kg

DRUGS (8)
  1. ALENDRONATE SODIUM. [Suspect]
     Active Substance: ALENDRONATE SODIUM
     Dosage: UNK, UNK
     Route: 048
     Dates: start: 20080811, end: 20100411
  2. FOSAMAX [Suspect]
     Active Substance: ALENDRONATE SODIUM
     Indication: OSTEOPOROSIS
     Dosage: 10 MG, QD
     Route: 048
     Dates: start: 200008, end: 201011
  3. BONIVA [Suspect]
     Active Substance: IBANDRONATE SODIUM
     Indication: OSTEOPOROSIS
     Dosage: 150 MG, UNK
     Route: 048
     Dates: start: 20101111, end: 201203
  4. BONIVA [Suspect]
     Active Substance: IBANDRONATE SODIUM
     Indication: OSTEOPENIA
  5. FOSAMAX [Suspect]
     Active Substance: ALENDRONATE SODIUM
     Indication: OSTEOPENIA
     Dosage: 70 MG, QW
     Route: 048
     Dates: end: 201011
  6. VITAMIN D [Concomitant]
     Active Substance: CHOLECALCIFEROL
     Indication: ROUTINE HEALTH MAINTENANCE
     Dosage: 1000 IU, BID
     Route: 048
     Dates: start: 2000, end: 20120222
  7. OMEGA-3 MARINE TRIGLYCERIDES [Concomitant]
     Active Substance: FISH OIL
     Indication: ROUTINE HEALTH MAINTENANCE
     Dosage: 300 MG, UNK
     Route: 048
     Dates: start: 2000, end: 2004
  8. CALCIUM (UNSPECIFIED) [Concomitant]
     Active Substance: CALCIUM
     Indication: ROUTINE HEALTH MAINTENANCE
     Dosage: 1200 MG, UNK
     Route: 048
     Dates: start: 2000, end: 2004

REACTIONS (20)
  - Femur fracture [Recovered/Resolved]
  - Migraine [Unknown]
  - Contusion [Unknown]
  - Hypoaesthesia [Unknown]
  - Arthropathy [Unknown]
  - Osteoarthritis [Unknown]
  - Dehydration [Unknown]
  - Hypertension [Unknown]
  - Arthralgia [Unknown]
  - Osteoarthritis [Unknown]
  - Acute kidney injury [Unknown]
  - Paraesthesia [Unknown]
  - Deep vein thrombosis [Unknown]
  - Joint effusion [Unknown]
  - Intramedullary rod insertion [Unknown]
  - Haemorrhagic anaemia [Unknown]
  - Limb injury [Unknown]
  - Pain in extremity [Unknown]
  - Poor dental condition [Unknown]
  - Hypercholesterolaemia [Unknown]

NARRATIVE: CASE EVENT DATE: 2002
